FAERS Safety Report 15922547 (Version 2)
Quarter: 2019Q1

REPORT INFORMATION
  Report Type: Spontaneous
  Country: US (occurrence: US)
  Receive Date: 20190205
  Receipt Date: 20190219
  Transmission Date: 20190417
  Serious: No
  Sender: FDA-Public Use
  Company Number: US-ALLERGAN-1811696US

PATIENT
  Sex: Female
  Weight: 53.61 kg

DRUGS (1)
  1. BOTOX COSMETIC [Suspect]
     Active Substance: ONABOTULINUMTOXINA
     Indication: SKIN WRINKLING
     Dosage: UNK, SINGLE
     Route: 030
     Dates: start: 20180107, end: 20180107

REACTIONS (3)
  - Facial paresis [Not Recovered/Not Resolved]
  - Off label use [Unknown]
  - Self esteem decreased [Unknown]
